FAERS Safety Report 23442587 (Version 2)
Quarter: 2024Q1

REPORT INFORMATION
  Report Type: Report from Study
  Country: CH (occurrence: US)
  Receive Date: 20240125
  Receipt Date: 20240131
  Transmission Date: 20240409
  Serious: Yes (Hospitalization, Other)
  Sender: FDA-Public Use
  Company Number: ENDG24-00152

PATIENT
  Sex: Male

DRUGS (5)
  1. PREDNISONE [Suspect]
     Active Substance: PREDNISONE
     Indication: Product used for unknown indication
     Dosage: UNK UNKNOWN, UNKNOWN
     Route: 065
  2. ORGOVYX [Suspect]
     Active Substance: RELUGOLIX
     Indication: Prostate cancer
     Dosage: 120 MILLIGRAM, DAILY
     Route: 048
     Dates: start: 20221012
  3. ORGOVYX [Suspect]
     Active Substance: RELUGOLIX
     Dosage: UNK UNKNOWN, UNKNOWN
     Route: 065
  4. ZYTIGA [Concomitant]
     Active Substance: ABIRATERONE ACETATE
     Indication: Product used for unknown indication
     Dosage: UNK UNKNOWN, UNKNOWN
     Route: 065
  5. INSULIN NOS [Concomitant]
     Active Substance: INSULIN NOS
     Indication: Product used for unknown indication
     Dosage: UNK UNKNOWN, UNKNOWN
     Route: 065

REACTIONS (5)
  - Drug interaction [Unknown]
  - Dyspnoea [Not Recovered/Not Resolved]
  - Blood sodium decreased [Unknown]
  - Lung disorder [Unknown]
  - Blood glucose increased [Not Recovered/Not Resolved]
